FAERS Safety Report 14061885 (Version 3)
Quarter: 2017Q4

REPORT INFORMATION
  Report Type: Report from Study
  Country: NL (occurrence: NL)
  Receive Date: 20171009
  Receipt Date: 20171020
  Transmission Date: 20180321
  Serious: Yes (Hospitalization, Other)
  Sender: FDA-Public Use
  Company Number: NL-SHIRE-NL201724799

PATIENT

DRUGS (10)
  1. CYTARABINE. [Suspect]
     Active Substance: CYTARABINE
     Indication: ACUTE LYMPHOCYTIC LEUKAEMIA
     Dosage: 120 MG, UNK
     Route: 065
     Dates: start: 20160215, end: 20160301
  2. METHOTREXATE. [Suspect]
     Active Substance: METHOTREXATE
     Indication: ACUTE LYMPHOCYTIC LEUKAEMIA
     Dosage: 15 MG, UNK
     Route: 037
     Dates: start: 20160110, end: 20160215
  3. VINBLASTINE [Suspect]
     Active Substance: VINBLASTINE
     Indication: ACUTE LYMPHOCYTIC LEUKAEMIA
     Dosage: 10 MG, UNK
     Route: 065
     Dates: start: 20160118, end: 20160201
  4. ETOPOSIDE. [Suspect]
     Active Substance: ETOPOSIDE
     Indication: ACUTE LYMPHOCYTIC LEUKAEMIA
     Dosage: 290 MG, UNK
     Route: 065
     Dates: start: 20160215, end: 20160229
  5. 6-THIOGUANINE [Suspect]
     Active Substance: THIOGUANINE
     Indication: ACUTE LYMPHOCYTIC LEUKAEMIA
     Dosage: 60 MG, UNK
     Route: 065
     Dates: start: 20160215, end: 20160305
  6. PREDNISOLONE. [Suspect]
     Active Substance: PREDNISOLONE
     Indication: ACUTE LYMPHOCYTIC LEUKAEMIA
     Dosage: 25 MG, UNK
     Route: 037
     Dates: start: 20160118, end: 20160215
  7. PEGASPARGASE [Suspect]
     Active Substance: PEGASPARGASE
     Indication: ACUTE LYMPHOCYTIC LEUKAEMIA
     Dosage: 1950 IU, UNK
     Route: 065
     Dates: start: 20160121, end: 20160204
  8. ADRIAMYCIN [Suspect]
     Active Substance: DOXORUBICIN HYDROCHLORIDE
     Indication: ACUTE LYMPHOCYTIC LEUKAEMIA
     Dosage: 50 MG, UNK
     Route: 065
     Dates: start: 20160118, end: 20160201
  9. DEXAMETHASONE. [Suspect]
     Active Substance: DEXAMETHASONE
     Indication: ACUTE LYMPHOCYTIC LEUKAEMIA
     Dosage: 10 MG, UNK
     Route: 048
     Dates: start: 20160118, end: 20160207
  10. G-CSF [Suspect]
     Active Substance: GRANULOCYTE COLONY-STIMULATING FACTOR NOS
     Indication: ACUTE LYMPHOCYTIC LEUKAEMIA
     Dosage: 48 X 10^6 E/ 0.5ML, UNK
     Route: 065
     Dates: start: 20160307, end: 20160307

REACTIONS (1)
  - Device related infection [Recovered/Resolved]

NARRATIVE: CASE EVENT DATE: 20160217
